FAERS Safety Report 9945200 (Version 1)
Quarter: 2014Q1

REPORT INFORMATION
  Report Type: Report from Study
  Country: US (occurrence: US)
  Receive Date: 20140303
  Receipt Date: 20140303
  Transmission Date: 20141002
  Serious: No
  Sender: FDA-Public Use
  Company Number: US-ABBVIE-13P-163-1053580-00

PATIENT
  Age: 58 Year
  Sex: Female
  Weight: 92.62 kg

DRUGS (10)
  1. HUMIRA [Suspect]
     Indication: PSORIASIS
     Dates: start: 201212
  2. METHOTREXATE [Concomitant]
     Indication: PSORIASIS
  3. FOLIC ACID [Concomitant]
     Indication: PRODUCT USED FOR UNKNOWN INDICATION
  4. VITAMIN B 6 [Concomitant]
     Indication: VITAMIN SUPPLEMENTATION
  5. VITAMIN B12 [Concomitant]
     Indication: HYPOVITAMINOSIS
  6. GABAPENTIN [Concomitant]
     Indication: DIABETIC NEUROPATHY
  7. SIMVASTATIN [Concomitant]
     Indication: BLOOD CHOLESTEROL INCREASED
  8. EFFEXOR XR [Concomitant]
     Indication: ANXIETY
  9. LIDODERM [Concomitant]
     Indication: PAIN
  10. CLOBETASOL CREAM [Concomitant]
     Indication: PSORIASIS

REACTIONS (1)
  - Psoriasis [Not Recovered/Not Resolved]
